FAERS Safety Report 7461210-2 (Version None)
Quarter: 2011Q2

REPORT INFORMATION
  Report Type: 
  Country: None (occurrence: None)
  Receive Date: 20110505
  Receipt Date: 20110422
  Transmission Date: 20111010
  Serious: Yes (Other)
  Sender: FDA-Public Use
  Company Number: CN-ASTRAZENECA-2011SE23096

PATIENT

DRUGS (11)
  1. PHENOBARBITAL SODIUM 100MG CAP [Concomitant]
  2. SCOPOLAMINE MC [Concomitant]
  3. PROPOFOL [Suspect]
     Indication: INDUCTION OF ANAESTHESIA
     Dosage: 1-1.5MG/KG
     Route: 008
  4. ROPIVACAINE [Suspect]
     Route: 008
  5. FENTANYL [Suspect]
     Indication: INDUCTION OF ANAESTHESIA
     Route: 008
  6. MORPHINE [Concomitant]
     Indication: ANALGESIC THERAPY
     Dosage: 60-80UG/ML
     Route: 008
  7. ROPIVACAINE [Suspect]
     Indication: ANALGESIC THERAPY
     Route: 008
  8. MIDAZOLAM [Concomitant]
     Indication: INDUCTION OF ANAESTHESIA
  9. PROPOFOL [Suspect]
     Indication: ANALGESIC THERAPY
     Dosage: 1-1.5MG/KG
     Route: 008
  10. FENTANYL [Suspect]
     Indication: ANALGESIC THERAPY
     Route: 008
  11. VECURONIUM BROMIDE [Concomitant]
     Indication: INDUCTION OF ANAESTHESIA

REACTIONS (1)
  - RESPIRATORY DEPRESSION [None]
